FAERS Safety Report 13778472 (Version 1)
Quarter: 2017Q3

REPORT INFORMATION
  Report Type: Spontaneous
  Country: GB (occurrence: GB)
  Receive Date: 20170721
  Receipt Date: 20170721
  Transmission Date: 20171127
  Serious: Yes (Disabling, Other)
  Sender: FDA-Public Use
  Company Number: GB-ACCORD-053754

PATIENT
  Age: 58 Year
  Sex: Female
  Weight: 81 kg

DRUGS (19)
  1. DILTIAZEM. [Concomitant]
     Active Substance: DILTIAZEM
     Dates: start: 20160718
  2. LACTULOSE. [Concomitant]
     Active Substance: LACTULOSE
     Dates: start: 20160912
  3. SYMBICORT [Concomitant]
     Active Substance: BUDESONIDE\FORMOTEROL FUMARATE DIHYDRATE
     Dosage: PUFFS
     Dates: start: 20170605
  4. CLOPIDOGREL [Suspect]
     Active Substance: CLOPIDOGREL BISULFATE
     Indication: PRODUCT USED FOR UNKNOWN INDICATION
     Dates: start: 20170628
  5. ACCRETE D3 [Concomitant]
     Dates: start: 20160505
  6. CANDESARTAN. [Concomitant]
     Active Substance: CANDESARTAN
     Dates: start: 20160412
  7. CARBOCISTEINE/CARBOCISTEINE LYSINE/CARBOCISTEINE SODIUM [Concomitant]
     Dates: start: 20160216
  8. NAPROXEN. [Concomitant]
     Active Substance: NAPROXEN
     Dates: start: 20161129
  9. TIOTROPIUM/TIOTROPIUM BROMIDE [Concomitant]
     Dates: start: 20160118, end: 20170615
  10. DOXYCYCLINE. [Concomitant]
     Active Substance: DOXYCYCLINE
     Dosage: TWO NOW THEN ONE DAILY
     Dates: start: 20170405, end: 20170412
  11. GAVISCON ADVANCE [Concomitant]
     Active Substance: POTASSIUM BICARBONATE\SODIUM ALGINATE
     Dosage: 5ML - 10ML 4 TIMES/DAY
     Dates: start: 20160118
  12. PREDNISOLONE. [Concomitant]
     Active Substance: PREDNISOLONE
     Dates: start: 20170515, end: 20170522
  13. SALBUTAMOL [Concomitant]
     Active Substance: ALBUTEROL
     Dosage: AS REQUIRED
     Dates: start: 20160118
  14. HYLO-TEAR [Concomitant]
     Dosage: USE AS DIRECTED
     Dates: start: 20160525, end: 20170629
  15. TILDIEM [Concomitant]
     Active Substance: DILTIAZEM HYDROCHLORIDE
     Dates: start: 20170608, end: 20170615
  16. RABEPRAZOLE/RABEPRAZOLE SODIUM [Concomitant]
     Dates: start: 20160412
  17. ISOSORBIDE. [Concomitant]
     Active Substance: ISOSORBIDE
     Dates: start: 20160412
  18. ESTRIOL [Concomitant]
     Active Substance: ESTRIOL
     Dosage: APPLY AS DIRECTED BY DOCTOR OR HOSPITAL
     Dates: start: 20160216
  19. FOSTAIR [Concomitant]
     Active Substance: BECLOMETHASONE\FORMOTEROL
     Dosage: PUFFS
     Dates: start: 20160912

REACTIONS (2)
  - Lip swelling [Recovered/Resolved]
  - Anaphylactic reaction [Unknown]

NARRATIVE: CASE EVENT DATE: 20170630
